FAERS Safety Report 23452999 (Version 1)
Quarter: 2024Q1

REPORT INFORMATION
  Report Type: Spontaneous
  Country: None (occurrence: AU)
  Receive Date: 20240129
  Receipt Date: 20240129
  Transmission Date: 20240410
  Serious: Yes (Other)
  Sender: FDA-Public Use
  Company Number: AU-Nova Laboratories Limited-2152227

PATIENT

DRUGS (3)
  1. PURIXAN [Suspect]
     Active Substance: MERCAPTOPURINE
     Indication: Product used for unknown indication
     Route: 048
  2. MESALAMINE [Suspect]
     Active Substance: MESALAMINE
     Route: 061
  3. ADALIMUMAB [Suspect]
     Active Substance: ADALIMUMAB\ISOPROPYL ALCOHOL

REACTIONS (3)
  - Colitis [Unknown]
  - Rectal haemorrhage [Unknown]
  - Therapy non-responder [Unknown]
